FAERS Safety Report 23258190 (Version 1)
Quarter: 2023Q4

REPORT INFORMATION
  Report Type: Spontaneous
  Country: US (occurrence: None)
  Receive Date: 20231201
  Receipt Date: 20231201
  Transmission Date: 20240110
  Serious: No
  Sender: FDA-Public Use
  Company Number: None

PATIENT
  Age: 64 Year
  Sex: Male

DRUGS (2)
  1. OTEZLA [Suspect]
     Active Substance: APREMILAST
     Indication: Pruritus
     Dosage: OTHER QUANTITY : TAKE 1 TABLET;?FREQUENCY : TWICE A DAY;?
     Route: 048
     Dates: start: 202308
  2. OTEZLA [Suspect]
     Active Substance: APREMILAST
     Indication: Psoriasis

REACTIONS (2)
  - COVID-19 [None]
  - Therapy interrupted [None]
